FAERS Safety Report 5287222-5 (Version None)
Quarter: 2007Q2

REPORT INFORMATION
  Report Type: 
  Country: None (occurrence: None)
  Receive Date: 20070404
  Receipt Date: 20070323
  Transmission Date: 20071010
  Serious: Yes (Other)
  Sender: FDA-Public Use
  Company Number: FR-PFIZER INC-2007023974

PATIENT
  Age: 78 Year
  Sex: Male

DRUGS (6)
  1. ZITHROMAX [Suspect]
     Dates: start: 20070321, end: 20070322
  2. THIOVALONE [Concomitant]
  3. DOLIPRANE [Concomitant]
     Dates: start: 20070321
  4. IBUPROFEN [Concomitant]
     Indication: BACK PAIN
  5. TETRAZEPAM [Concomitant]
     Indication: BACK PAIN
  6. ANAFRANIL [Concomitant]
     Indication: NEURALGIA

REACTIONS (4)
  - ABDOMINAL PAIN [None]
  - DYSURIA [None]
  - HAEMATURIA [None]
  - POLLAKIURIA [None]
